FAERS Safety Report 5854589-6 (Version None)
Quarter: 2008Q3

REPORT INFORMATION
  Report Type: 
  Country: None (occurrence: None)
  Receive Date: 20080822
  Receipt Date: 20071016
  Transmission Date: 20090109
  Serious: No
  Sender: FDA-Public Use
  Company Number: US-ABBOTT-07P-163-0421412-00

PATIENT
  Sex: Female
  Weight: 61.29 kg

DRUGS (4)
  1. SYNTHROID [Suspect]
     Indication: HYPOTHYROIDISM
     Route: 048
     Dates: start: 19970101
  2. EZETIMIBE [Concomitant]
     Indication: DRUG USE FOR UNKNOWN INDICATION
     Route: 048
     Dates: end: 20060401
  3. ALPRAZOLAM [Concomitant]
     Indication: ANXIETY
     Route: 048
  4. NEFAZODONE HCL [Concomitant]
     Indication: DEPRESSION
     Route: 048

REACTIONS (3)
  - DRUG DOSE OMISSION [None]
  - DYSGEUSIA [None]
  - INTESTINAL OBSTRUCTION [None]
